FAERS Safety Report 6944142-5 (Version None)
Quarter: 2010Q3

REPORT INFORMATION
  Report Type: 
  Country: None (occurrence: None)
  Receive Date: 20100827
  Receipt Date: 20100817
  Transmission Date: 20110219
  Serious: No
  Sender: FDA-Public Use
  Company Number: US-BIOGENIDEC-2010BI028835

PATIENT
  Sex: Female

DRUGS (1)
  1. TYSABRI [Suspect]
     Indication: MULTIPLE SCLEROSIS
     Route: 042
     Dates: start: 20100716

REACTIONS (6)
  - DEPRESSION [None]
  - GAIT DISTURBANCE [None]
  - MALAISE [None]
  - PAIN IN EXTREMITY [None]
  - TREMOR [None]
  - URINARY TRACT INFECTION [None]
